FAERS Safety Report 18324408 (Version 2)
Quarter: 2021Q3

REPORT INFORMATION
  Report Type: Spontaneous
  Country: FR (occurrence: FR)
  Receive Date: 20200929
  Receipt Date: 20210828
  Transmission Date: 20211014
  Serious: Yes (Hospitalization)
  Sender: FDA-Public Use
  Company Number: NVSC2020FR257114

PATIENT
  Age: 65 Year
  Sex: Male
  Weight: 97 kg

DRUGS (2)
  1. TAFINLAR [Suspect]
     Active Substance: DABRAFENIB MESYLATE
     Indication: NODULAR MELANOMA
     Dosage: 300 MG, QD
     Route: 048
     Dates: start: 20200818, end: 20200902
  2. MEKINIST [Suspect]
     Active Substance: TRAMETINIB DIMETHYL SULFOXIDE
     Indication: NODULAR MELANOMA
     Dosage: 2 DF, QD
     Route: 048
     Dates: start: 20200818, end: 20200902

REACTIONS (5)
  - Pyrexia [Recovered/Resolved]
  - Mixed liver injury [Recovering/Resolving]
  - Hyponatraemia [Recovered/Resolved]
  - Rhabdomyolysis [Recovered/Resolved]
  - Rash [Recovered/Resolved]

NARRATIVE: CASE EVENT DATE: 20200830
